FAERS Safety Report 18756128 (Version 1)
Quarter: 2021Q1

REPORT INFORMATION
  Report Type: Spontaneous
  Country: US (occurrence: US)
  Receive Date: 20210117
  Receipt Date: 20210117
  Transmission Date: 20210419
  Serious: No
  Sender: FDA-Public Use
  Company Number: None

PATIENT
  Age: 38 Year
  Sex: Female
  Weight: 76.5 kg

DRUGS (18)
  1. ACETAZOLAMIDE. [Concomitant]
     Active Substance: ACETAZOLAMIDE
  2. PURE ENCAPSULATIONS IRON?C [Concomitant]
  3. CLOBETASOL PROPIONATE. [Concomitant]
     Active Substance: CLOBETASOL PROPIONATE
  4. ARMOUR THYROID [Concomitant]
     Active Substance: THYROID, PORCINE
  5. RIZITRIPTAN [Concomitant]
  6. PURE ENCAPSULATIONS INOSITOL POWDER [Concomitant]
  7. NATURELO VITAMIN D?3 [Concomitant]
  8. RESTORFLORA PROBIOTIC [Concomitant]
  9. PURE ENCAPSULATION GLUCOFUNCTION [Concomitant]
  10. EMERITA PRO?GEST CREAM [Concomitant]
  11. RESULTS RNA ACG EXTRA STRENGTH GLUTATHIONE SUBLINGUAL SPRAY [Concomitant]
  12. ATORVASTATIN [Concomitant]
     Active Substance: ATORVASTATIN
  13. DIFFERIN GEL [Suspect]
     Active Substance: ADAPALENE
     Indication: ACNE CYSTIC
     Dosage: ?          QUANTITY:1 APPLICATION;OTHER FREQUENCY:IN THE EVENING;?
     Route: 061
     Dates: start: 20201011, end: 20201122
  14. BIOTICS RESEARCH BETAINE PLUS HP [Concomitant]
  15. ORTHO MOLECULAR PRODUCTS BALANCE [Concomitant]
  16. HYDROXYZINE PAMOATE. [Concomitant]
     Active Substance: HYDROXYZINE PAMOATE
  17. CALCIPROTRIENE [Concomitant]
  18. NATURELO WOMEN^S MULTIVITAMIN [Concomitant]

REACTIONS (4)
  - Rash erythematous [None]
  - Scar [None]
  - Skin discolouration [None]
  - Skin exfoliation [None]

NARRATIVE: CASE EVENT DATE: 20201122
